FAERS Safety Report 18581694 (Version 8)
Quarter: 2021Q3

REPORT INFORMATION
  Report Type: Report from Study
  Country: US (occurrence: US)
  Receive Date: 20201205
  Receipt Date: 20210806
  Transmission Date: 20211014
  Serious: No
  Sender: FDA-Public Use
  Company Number: NVSC2020US324609

PATIENT
  Sex: Male

DRUGS (2)
  1. ENTRESTO [Suspect]
     Active Substance: SACUBITRIL\VALSARTAN
     Indication: PRODUCT USED FOR UNKNOWN INDICATION
     Dosage: 1 DF, BID (49/51 MG, TWICE A DAY)
     Route: 048
     Dates: start: 202011
  2. ATORVASTATIN [Concomitant]
     Active Substance: ATORVASTATIN
     Indication: BLOOD CHOLESTEROL
     Dosage: UNK
     Route: 065

REACTIONS (12)
  - Dizziness [Recovering/Resolving]
  - Lethargy [Not Recovered/Not Resolved]
  - Pyrexia [Unknown]
  - Influenza [Unknown]
  - Weight increased [Not Recovered/Not Resolved]
  - Fall [Recovering/Resolving]
  - Swelling [Recovered/Resolved]
  - Blood glucose increased [Recovered/Resolved]
  - Weight fluctuation [Not Recovered/Not Resolved]
  - Fluid retention [Recovered/Resolved]
  - Muscle twitching [Recovering/Resolving]
  - Weight decreased [Recovering/Resolving]
